FAERS Safety Report 24897353 (Version 3)
Quarter: 2025Q4

REPORT INFORMATION
  Report Type: Spontaneous
  Country: US (occurrence: US)
  Receive Date: 20250129
  Receipt Date: 20251107
  Transmission Date: 20260118
  Serious: Yes (Hospitalization)
  Sender: ROCHE
  Company Number: US-ROCHE-10000190498

PATIENT
  Sex: Male

DRUGS (11)
  1. ESBRIET [Suspect]
     Active Substance: PIRFENIDONE
     Indication: Idiopathic pulmonary fibrosis
     Route: 048
     Dates: start: 2023
  2. ESBRIET [Suspect]
     Active Substance: PIRFENIDONE
     Indication: Pulmonary fibrosis
     Route: 048
  3. ATORVASTATIN [Concomitant]
     Active Substance: ATORVASTATIN
  4. LANSOPRAZOLE CPD 30 MG [Concomitant]
  5. LORAZEPAM TAB 1 MG [Concomitant]
  6. FISH OIL [Concomitant]
     Active Substance: FISH OIL
  7. TYLENOL TAB 325 MG [Concomitant]
  8. METOPROLOL TB 250 MG [Concomitant]
  9. TERAZOSIN HC CAP 10 MG [Concomitant]
  10. HYDRALAZINE TAB 25 MG [Concomitant]
  11. ASPIRIN 81 TBE 81 MG [Concomitant]

REACTIONS (3)
  - Fatigue [Not Recovered/Not Resolved]
  - COVID-19 [Not Recovered/Not Resolved]
  - Heart rate decreased [Not Recovered/Not Resolved]
